FAERS Safety Report 18453678 (Version 3)
Quarter: 2020Q4

REPORT INFORMATION
  Report Type: Spontaneous
  Country: US (occurrence: US)
  Receive Date: 20201102
  Receipt Date: 20201216
  Transmission Date: 20210114
  Serious: Yes (Other)
  Sender: FDA-Public Use
  Company Number: US-VERTEX PHARMACEUTICALS-2020-021185

PATIENT
  Age: 29 Year
  Sex: Female
  Weight: 67 kg

DRUGS (24)
  1. URSODIOL. [Concomitant]
     Active Substance: URSODIOL
     Dosage: 300 MG
  2. MYCOPHENOLATE MOFETIL. [Concomitant]
     Active Substance: MYCOPHENOLATE MOFETIL
  3. VITAMIN D [COLECALCIFEROL] [Concomitant]
     Active Substance: CHOLECALCIFEROL
     Dosage: 10 MICROGRAM
  4. LEXAPRO [Concomitant]
     Active Substance: ESCITALOPRAM OXALATE
     Dosage: 20 MG
  5. FLONASE ALLERGY RELIEF [Concomitant]
     Active Substance: FLUTICASONE PROPIONATE
  6. FISH OIL [Concomitant]
     Active Substance: FISH OIL
     Dosage: 100-150 MG CAPSULE
  7. VALCYTE [Concomitant]
     Active Substance: VALGANCICLOVIR HYDROCHLORIDE
     Dosage: 450 MG
  8. VANCOCIN [Concomitant]
     Active Substance: VANCOMYCIN HYDROCHLORIDE
     Dosage: 250 MG
  9. TUMS [Concomitant]
     Active Substance: CALCIUM CARBONATE
     Dosage: 500 MG
  10. HUMALOG [Concomitant]
     Active Substance: INSULIN LISPRO
     Dosage: 100 PER ML
  11. ADVAIR HFA [Concomitant]
     Active Substance: FLUTICASONE PROPIONATE\SALMETEROL XINAFOATE
     Dosage: 115-21 MCG
  12. MAGNESIUM [Concomitant]
     Active Substance: MAGNESIUM
     Dosage: 200 MG
  13. TRIKAFTA [Suspect]
     Active Substance: ELEXACAFTOR\IVACAFTOR\TEZACAFTOR
     Dosage: 2 ORANGE TABS EVERY OTHER MORNING ALTERNATE WITH 1 BLUE TAB EVERY OTHER MORNING
     Route: 048
     Dates: start: 2020
  14. CRANBERRY [VACCINIUM MACROCARPON] [Concomitant]
     Active Substance: CRANBERRY
     Dosage: 200 MG
  15. ZYRTEC [Concomitant]
     Active Substance: CETIRIZINE HYDROCHLORIDE
     Dosage: UNK
  16. AZITHROMYCIN ANHYDROUS. [Concomitant]
     Active Substance: AZITHROMYCIN ANHYDROUS
     Dosage: 250 MG
  17. TACROLIMUS. [Concomitant]
     Active Substance: TACROLIMUS
  18. TRIKAFTA [Suspect]
     Active Substance: ELEXACAFTOR\IVACAFTOR\TEZACAFTOR
     Indication: CYSTIC FIBROSIS
     Dosage: 2 ORANGE TABS IN AM AND 1 BLUE TAB IN PM
     Route: 048
     Dates: start: 20201005, end: 2020
  19. NEXIUM I.V. [Concomitant]
     Active Substance: ESOMEPRAZOLE SODIUM
     Dosage: 20 MG
  20. CRESEMBA [Concomitant]
     Active Substance: ISAVUCONAZONIUM SULFATE
     Dosage: 372 MG
  21. ATORVASTATIN CALCIUM. [Concomitant]
     Active Substance: ATORVASTATIN CALCIUM
     Dosage: 10 MG
  22. PREDNISONE. [Concomitant]
     Active Substance: PREDNISONE
     Dosage: 10 MG
  23. MIRALAX [Concomitant]
     Active Substance: POLYETHYLENE GLYCOL 3350
     Dosage: 17G/ DOSE POWDER
  24. BACTRIM [Concomitant]
     Active Substance: SULFAMETHOXAZOLE\TRIMETHOPRIM
     Dosage: 400-80 MG

REACTIONS (5)
  - Decreased appetite [Not Recovered/Not Resolved]
  - Tenderness [Not Recovered/Not Resolved]
  - Chromaturia [Unknown]
  - Dehydration [Unknown]
  - Lung transplant rejection [Not Recovered/Not Resolved]

NARRATIVE: CASE EVENT DATE: 202010
